FAERS Safety Report 21934293 (Version 4)
Quarter: 2023Q1

REPORT INFORMATION
  Report Type: Report from Study
  Country: JP (occurrence: JP)
  Receive Date: 20230201
  Receipt Date: 20230315
  Transmission Date: 20230418
  Serious: Yes (Hospitalization, Other)
  Sender: FDA-Public Use
  Company Number: JP-ONO-2023JP002194

PATIENT
  Age: 64 Year
  Weight: 55.4 kg

DRUGS (9)
  1. BRAFTOVI [Suspect]
     Active Substance: ENCORAFENIB
     Indication: Colon cancer
     Dosage: 300 MG, EVERYDAY
     Route: 048
     Dates: start: 20230118, end: 20230124
  2. MEKTOVI [Suspect]
     Active Substance: BINIMETINIB
     Indication: Colon cancer
     Dosage: 90 MG, EVERYDAY
     Route: 048
     Dates: start: 20230118, end: 20230124
  3. CETUXIMAB [Suspect]
     Active Substance: CETUXIMAB
     Indication: Colon cancer
     Dosage: 250 MG
     Route: 041
     Dates: start: 20230118, end: 20230118
  4. CALONAL [Concomitant]
     Active Substance: ACETAMINOPHEN
     Dosage: 2000 MG
     Route: 065
     Dates: start: 20230108, end: 20230124
  5. ETODOLAC [Concomitant]
     Active Substance: ETODOLAC
     Dosage: 400 MG
     Route: 048
     Dates: start: 20230108, end: 20230124
  6. SYMPROIC [Concomitant]
     Active Substance: NALDEMEDINE
     Dosage: 0.2 MG
     Route: 048
     Dates: start: 20230108, end: 20230124
  7. LASIX [Concomitant]
     Active Substance: FUROSEMIDE
     Dosage: 40 MG
     Route: 048
     Dates: start: 20230108, end: 20230124
  8. EDOXABAN TOSYLATE [Concomitant]
     Active Substance: EDOXABAN TOSYLATE
     Dosage: 30 MG
     Route: 048
     Dates: start: 20230108, end: 20230124
  9. NEXIUM [Concomitant]
     Active Substance: ESOMEPRAZOLE MAGNESIUM
     Dosage: 20 MG
     Route: 048
     Dates: start: 20230108, end: 20230124

REACTIONS (8)
  - Altered state of consciousness [Recovered/Resolved]
  - Renal impairment [Recovered/Resolved]
  - Bacteraemia [Recovering/Resolving]
  - Somnolence [Recovered/Resolved]
  - Malaise [Recovered/Resolved]
  - Decreased appetite [Recovered/Resolved]
  - Dizziness [Recovered/Resolved]
  - Pyrexia [Recovering/Resolving]

NARRATIVE: CASE EVENT DATE: 20230123
